FAERS Safety Report 10191589 (Version 1)
Quarter: 2014Q2

REPORT INFORMATION
  Report Type: Spontaneous
  Country: US (occurrence: US)
  Receive Date: 20140523
  Receipt Date: 20140523
  Transmission Date: 20141212
  Serious: Yes (Other)
  Sender: FDA-Public Use
  Company Number: US-PFIZER INC-2014140749

PATIENT
  Age: 45 Year
  Sex: Female
  Weight: 49.89 kg

DRUGS (6)
  1. SOLU-MEDROL [Suspect]
     Dosage: UNK
     Dates: start: 20140424
  2. AMPYRA [Suspect]
     Indication: GAIT DISTURBANCE
     Dosage: 10 MG, 2X/DAY
     Route: 048
     Dates: start: 201208
  3. BENADRYL [Suspect]
     Dosage: UNK
     Dates: start: 20140424
  4. TYSABRI [Suspect]
     Indication: MULTIPLE SCLEROSIS
     Dosage: UNK
     Route: 042
     Dates: start: 20140424
  5. LOVENOX [Concomitant]
     Dosage: UNK
  6. VITAMIN D [Concomitant]
     Dosage: UNK

REACTIONS (4)
  - Multiple sclerosis relapse [Recovered/Resolved]
  - Restlessness [Recovered/Resolved]
  - Fatigue [Recovered/Resolved]
  - Gait disturbance [Recovered/Resolved]
